FAERS Safety Report 8190776-2 (Version None)
Quarter: 2012Q1

REPORT INFORMATION
  Report Type: 
  Country: None (occurrence: None)
  Receive Date: 20120307
  Receipt Date: 20120222
  Transmission Date: 20120608
  Serious: Yes (Hospitalization)
  Sender: FDA-Public Use
  Company Number: SK-AMGEN-SVKSP2012013170

PATIENT
  Age: 23 Year
  Sex: Male

DRUGS (1)
  1. ENBREL [Suspect]
     Indication: PSORIASIS
     Dosage: UNK

REACTIONS (9)
  - AMYLASE INCREASED [None]
  - LIVER DISORDER [None]
  - DEMYELINATION [None]
  - DUODENITIS [None]
  - GASTRITIS [None]
  - MESENTERIC LYMPHADENOPATHY [None]
  - HYPOCHROMIC ANAEMIA [None]
  - HEMIPARESIS [None]
  - GASTROOESOPHAGEAL REFLUX DISEASE [None]
